FAERS Safety Report 16525936 (Version 4)
Quarter: 2019Q3

REPORT INFORMATION
  Report Type: Report from Study
  Country: KR (occurrence: KR)
  Receive Date: 20190703
  Receipt Date: 20190725
  Transmission Date: 20191004
  Serious: Yes (Hospitalization)
  Sender: FDA-Public Use
  Company Number: KR-CELLTRION INC.-2019KR022431

PATIENT

DRUGS (11)
  1. TRUXIMA [Suspect]
     Active Substance: RITUXIMAB-ABBS
     Dosage: DAY 1: 500 MG/M2 (780MG QD) + 5% DW 500 ML, EVERY 4 WEEKS (A TOTAL OF 2 CYCLE CONSOLIDATION CHEMOTHE
     Route: 042
     Dates: start: 20190523, end: 20190620
  2. CRAVIT [Concomitant]
     Active Substance: LEVOFLOXACIN
     Indication: INFECTION PROPHYLAXIS
     Dosage: 500 MG, QD
     Route: 048
     Dates: start: 20190620, end: 20190629
  3. CYTARABINE. [Suspect]
     Active Substance: CYTARABINE
     Indication: DIFFUSE LARGE B-CELL LYMPHOMA
     Dosage: CONSOLIDATION CHEMOTHERAPY DAY 2 AND DAY 3: 3000 MG/M2  (4680MG QD) + 5%DW 200 ML, EVERY 4 WEEKS
     Route: 042
  4. MYTONIN [BENZYDAMINE HYDROCHLORIDE] [Concomitant]
     Indication: PROPHYLAXIS
     Dosage: 25 MG, TID
     Route: 048
     Dates: start: 20190217
  5. BARACLUDE [Concomitant]
     Active Substance: ENTECAVIR
     Indication: ANTIVIRAL PROPHYLAXIS
     Dosage: 0.5 MG, QD
     Route: 048
     Dates: start: 20190523
  6. METHOTREXATE. [Suspect]
     Active Substance: METHOTREXATE
     Indication: DIFFUSE LARGE B-CELL LYMPHOMA
     Dosage: INDUCTION CHEMOTHERAPY (DAY 2): 500 MG/M2 + 5%DW 200 ML, EVERY 2 WEEKS
     Route: 042
  7. METHOTREXATE. [Suspect]
     Active Substance: METHOTREXATE
     Dosage: INDUCTION CHEMOTHERAPY (DAY 2): 3000 MG/M2 + 5%DW 500 ML, EVERY 2 WEEKS
     Route: 042
  8. GLIATILIN [Concomitant]
     Active Substance: CHOLINE ALFOSCERATE
     Indication: PROPHYLAXIS
     Dosage: 400 MG, BID
     Route: 048
     Dates: start: 20190211
  9. ARICEPT [Concomitant]
     Active Substance: DONEPEZIL HYDROCHLORIDE
     Indication: PROPHYLAXIS
     Dosage: 5 MG, QD
     Route: 048
     Dates: start: 20190419
  10. TRUXIMA [Suspect]
     Active Substance: RITUXIMAB-ABBS
     Indication: DIFFUSE LARGE B-CELL LYMPHOMA
     Dosage: DAY 1: 500 MG/M2 + 5%DW 500 ML IVF (BEGIN WITH 50 MG/HR (INCREASE BY 50 MG/HR PER 30 MIN UNTIL 400 M
     Route: 042
     Dates: start: 20190227, end: 20190501
  11. KEPPRA [Concomitant]
     Active Substance: LEVETIRACETAM
     Indication: PROPHYLAXIS
     Dosage: 500 MG, BID
     Route: 048
     Dates: start: 20190227

REACTIONS (2)
  - Embolism [Recovering/Resolving]
  - Herpes zoster [Recovered/Resolved]

NARRATIVE: CASE EVENT DATE: 20190621
